FAERS Safety Report 10171522 (Version 1)
Quarter: 2014Q2

REPORT INFORMATION
  Report Type: Spontaneous
  Country: US (occurrence: US)
  Receive Date: 20140514
  Receipt Date: 20140514
  Transmission Date: 20141212
  Serious: No
  Sender: FDA-Public Use
  Company Number: US-009507513-1404USA015439

PATIENT
  Sex: Male

DRUGS (5)
  1. CLARITIN [Suspect]
     Indication: HYPERSENSITIVITY
     Dosage: UNK, UNKNOWN
     Route: 048
     Dates: start: 201403
  2. CLARITIN [Suspect]
     Indication: OEDEMA MOUTH
  3. CLARITIN [Suspect]
     Indication: PALATAL SWELLING
  4. CLARITIN [Suspect]
     Indication: DYSPNOEA
  5. CLARITIN [Suspect]
     Indication: GINGIVAL SWELLING

REACTIONS (2)
  - Insomnia [Unknown]
  - Drug effect decreased [Unknown]
